FAERS Safety Report 5364060-6 (Version None)
Quarter: 2007Q2

REPORT INFORMATION
  Report Type: 
  Country: None (occurrence: None)
  Receive Date: 20070620
  Receipt Date: 20070614
  Transmission Date: 20071010
  Serious: Yes (Hospitalization)
  Sender: FDA-Public Use
  Company Number: CH-ASTRAZENECA-2007PK01199

PATIENT
  Age: 71 Year
  Sex: Male

DRUGS (9)
  1. BELOC ZOK [Interacting]
     Indication: ESSENTIAL HYPERTENSION
     Route: 048
  2. EPRIL [Suspect]
     Indication: ESSENTIAL HYPERTENSION
     Route: 048
  3. TORSEMIDE [Suspect]
     Indication: ESSENTIAL HYPERTENSION
     Route: 048
  4. DOPAKINE CHRONO [Concomitant]
     Dosage: 87/200 MG , 300MG BID
     Route: 048
  5. DIGOXIN [Concomitant]
     Indication: ATRIAL FIBRILLATION
     Route: 048
  6. DIGOXIN [Concomitant]
     Indication: ATRIAL FLUTTER
     Route: 048
  7. ACENOCOUMAROL [Concomitant]
     Indication: ATRIAL FIBRILLATION
     Route: 048
  8. ACENOCOUMAROL [Concomitant]
     Indication: ATRIAL FLUTTER
     Route: 048
  9. INSULATARD HM [Concomitant]
     Indication: DIABETES MELLITUS INSULIN-DEPENDENT
     Route: 058

REACTIONS (1)
  - DRUG INEFFECTIVE [None]
